FAERS Safety Report 22895493 (Version 2)
Quarter: 2023Q4

REPORT INFORMATION
  Report Type: Spontaneous
  Country: AT (occurrence: AT)
  Receive Date: 20230901
  Receipt Date: 20231006
  Transmission Date: 20240110
  Serious: Yes (Other)
  Sender: FDA-Public Use
  Company Number: AT-TEVA-2023-AT-2921292

PATIENT
  Sex: Female

DRUGS (1)
  1. AJOVY [Suspect]
     Active Substance: FREMANEZUMAB-VFRM
     Indication: Product used for unknown indication
     Route: 065

REACTIONS (1)
  - Blood pressure increased [Unknown]
